FAERS Safety Report 16794440 (Version 3)
Quarter: 2019Q4

REPORT INFORMATION
  Report Type: Report from Study
  Country: BR (occurrence: BR)
  Receive Date: 20190911
  Receipt Date: 20191123
  Transmission Date: 20200122
  Serious: Yes (Life-Threatening, Hospitalization, Other)
  Sender: FDA-Public Use
  Company Number: PHHY2019BR196804

PATIENT
  Age: 47 Year
  Sex: Male

DRUGS (2)
  1. VOTRIENT [Suspect]
     Active Substance: PAZOPANIB HYDROCHLORIDE
     Indication: RENAL CANCER
     Dosage: 2 DF, QD
     Route: 048
     Dates: start: 20190807
  2. RANITIDINE. [Suspect]
     Active Substance: RANITIDINE
     Indication: PRODUCT USED FOR UNKNOWN INDICATION
     Route: 065

REACTIONS (14)
  - Feeling abnormal [Unknown]
  - Movement disorder [Recovering/Resolving]
  - Thinking abnormal [Recovered/Resolved]
  - Nervous system disorder [Unknown]
  - Product dose omission [Unknown]
  - Blood sodium decreased [Recovering/Resolving]
  - Pain [Recovered/Resolved]
  - Back pain [Unknown]
  - Delusion [Unknown]
  - Hypertension [Recovering/Resolving]
  - Malaise [Unknown]
  - Aphonia [Unknown]
  - Feeling abnormal [Recovered/Resolved]
  - Fatigue [Not Recovered/Not Resolved]

NARRATIVE: CASE EVENT DATE: 20190815
